FAERS Safety Report 8891992 (Version 1)
Quarter: 2012Q4

REPORT INFORMATION
  Report Type: 
  Country: US (occurrence: US)
  Receive Date: 20121107
  Receipt Date: 20121107
  Transmission Date: 20130627
  Serious: No
  Sender: FDA-Public Use
  Company Number: US-AMGEN-USASP2011055619

PATIENT
  Sex: Female

DRUGS (1)
  1. ENBREL [Suspect]
     Indication: JUVENILE ARTHRITIS
     Dosage: 0.5 ml, 2 times/wk
     Dates: start: 201108

REACTIONS (2)
  - Eczema [Not Recovered/Not Resolved]
  - Drug ineffective [Not Recovered/Not Resolved]
